FAERS Safety Report 12190729 (Version 1)
Quarter: 2016Q1

REPORT INFORMATION
  Report Type: Spontaneous
  Country: US (occurrence: US)
  Receive Date: 20160318
  Receipt Date: 20160318
  Transmission Date: 20160526
  Serious: Yes (Congenital Anomaly)
  Sender: FDA-Public Use
  Company Number: US-009507513-1603USA008225

PATIENT

DRUGS (2)
  1. LOPINAVIR (+) RITONAVIR [Suspect]
     Active Substance: LOPINAVIR\RITONAVIR
     Dosage: 4 TABLET/CAPSULES, QD
     Route: 064
  2. ISENTRESS [Suspect]
     Active Substance: RALTEGRAVIR POTASSIUM
     Dosage: 400 MG, QD
     Route: 064

REACTIONS (3)
  - Talipes [Unknown]
  - Foetal exposure during pregnancy [Unknown]
  - Congenital hand malformation [Unknown]

NARRATIVE: CASE EVENT DATE: 2015
